FAERS Safety Report 24627759 (Version 3)
Quarter: 2025Q2

REPORT INFORMATION
  Report Type: Spontaneous
  Country: US (occurrence: US)
  Receive Date: 20241116
  Receipt Date: 20250531
  Transmission Date: 20250716
  Serious: Yes (Other)
  Sender: ELI LILLY AND COMPANY
  Company Number: US-ELI_LILLY_AND_COMPANY-US202411003466

PATIENT
  Age: 86 Year
  Sex: Female

DRUGS (5)
  1. VERZENIO [Suspect]
     Active Substance: ABEMACICLIB
     Indication: Breast cancer metastatic
     Dosage: 150 MG, BID
     Route: 048
     Dates: start: 20240919
  2. VERZENIO [Suspect]
     Active Substance: ABEMACICLIB
     Dosage: 75 MG, BID
     Route: 048
     Dates: start: 20241024
  3. VERZENIO [Suspect]
     Active Substance: ABEMACICLIB
     Route: 048
     Dates: end: 20241108
  4. VERZENIO [Suspect]
     Active Substance: ABEMACICLIB
     Route: 048
     Dates: start: 20241109
  5. ANASTROZOLE [Concomitant]
     Active Substance: ANASTROZOLE
     Indication: Breast cancer metastatic

REACTIONS (16)
  - Malignant neoplasm progression [Unknown]
  - Taste disorder [Recovered/Resolved]
  - Hypophagia [Recovered/Resolved]
  - Pain [Recovered/Resolved]
  - Liver function test increased [Recovered/Resolved]
  - Ageusia [Recovering/Resolving]
  - Oral discomfort [Not Recovered/Not Resolved]
  - Arthritis [Not Recovered/Not Resolved]
  - Wrong technique in product usage process [Unknown]
  - Oropharyngeal pain [Recovered/Resolved]
  - Oropharyngeal pain [Not Recovered/Not Resolved]
  - Weight decreased [Recovered/Resolved]
  - Diarrhoea [Not Recovered/Not Resolved]
  - Decreased appetite [Recovered/Resolved]
  - Alopecia [Not Recovered/Not Resolved]
  - Diarrhoea [Recovered/Resolved]
